FAERS Safety Report 9350674 (Version 6)
Quarter: 2013Q4

REPORT INFORMATION
  Report Type: Report from Study
  Country: AU (occurrence: AU)
  Receive Date: 20130617
  Receipt Date: 20131210
  Transmission Date: 20140711
  Serious: Yes (Other)
  Sender: FDA-Public Use
  Company Number: PHHY2013AU060504

PATIENT
  Age: 76 Year
  Sex: Male

DRUGS (15)
  1. ACLASTA [Suspect]
     Indication: OSTEOPOROSIS
     Dosage: 5 MG
     Route: 042
     Dates: start: 20110523
  2. ACLASTA [Suspect]
     Dosage: 5 MG
     Route: 042
     Dates: start: 2012
  3. ARISTOCORT [Concomitant]
     Dosage: UNK UKN, BID
  4. ASMOL [Concomitant]
     Dosage: 100 UG, (1-2 PUFFS 4 HOURLY AS REQUIRED)
  5. ASTRIX [Concomitant]
     Dosage: 1 DF, (1 IN THE MORNING WITH MEAL)
  6. ENDONE [Concomitant]
     Dosage: UNK UKN, (AS DIRECTED 1-4 TIMES A DAY)
  7. LOVAN [Concomitant]
     Dosage: 1 DF, 1 DAILY
  8. LYRICA [Concomitant]
     Dosage: 1 DF, BID (75 MG TWICW A DAY)
  9. NEXIUM [Concomitant]
     Dosage: 1 DF, (1 IN A MORNING)
  10. PANADOL [Concomitant]
     Dosage: UNK UKN, (TWO THREE TIMES A DAY)
  11. PRAMIN [Concomitant]
     Dosage: 1 DF, DAILY PM
  12. SERETIDE MDI [Concomitant]
     Dosage: UNK UKN, (1 TO 2 TIMES A DAY)
  13. SPIRIVA [Concomitant]
     Dosage: 1 DF, DAILY
  14. TEMAZE [Concomitant]
     Dosage: UNK UKN, (1-3 NOCTE 30 MINS BEFORE BED)
  15. VENTOLIN [Concomitant]
     Dosage: 100 UG, (2 PUFFS EVERY 4 HOUR)

REACTIONS (3)
  - Impaired healing [Not Recovered/Not Resolved]
  - Humerus fracture [Recovered/Resolved]
  - Fall [Unknown]
